FAERS Safety Report 12493935 (Version 5)
Quarter: 2016Q4

REPORT INFORMATION
  Report Type: Spontaneous
  Country: US (occurrence: US)
  Receive Date: 20160623
  Receipt Date: 20161026
  Transmission Date: 20170207
  Serious: Yes (Other)
  Sender: FDA-Public Use
  Company Number: US-TEVA-669484USA

PATIENT
  Age: 33 Year
  Sex: Female

DRUGS (4)
  1. ZECUITY [Suspect]
     Active Substance: SUMATRIPTAN SUCCINATE
     Indication: MIGRAINE
     Route: 062
     Dates: start: 20160608, end: 20160608
  2. BENICAR [Concomitant]
     Active Substance: OLMESARTAN MEDOXOMIL
  3. QVAIR [Concomitant]
  4. ZOPENEX [Concomitant]

REACTIONS (16)
  - Application site erythema [Recovered/Resolved]
  - Migraine [Recovered/Resolved]
  - Application site scar [Recovered/Resolved]
  - Product leakage [Recovered/Resolved]
  - Application site rash [Recovered/Resolved]
  - Application site paraesthesia [Recovered/Resolved]
  - Sunburn [Recovered/Resolved]
  - Application site pain [Recovered/Resolved]
  - Application site pruritus [Recovered/Resolved]
  - Application site burn [Recovered/Resolved]
  - Application site vesicles [Recovered/Resolved]
  - Application site erosion [Recovered/Resolved]
  - Application site irritation [Recovered/Resolved]
  - Application site discolouration [Recovered/Resolved]
  - Application site exfoliation [Recovered/Resolved]
  - Application site warmth [Recovered/Resolved]

NARRATIVE: CASE EVENT DATE: 201606
